FAERS Safety Report 18679133 (Version 1)
Quarter: 2020Q4

REPORT INFORMATION
  Report Type: Spontaneous
  Country: JP (occurrence: JP)
  Receive Date: 20201229
  Receipt Date: 20201229
  Transmission Date: 20210114
  Serious: Yes (Other)
  Sender: FDA-Public Use
  Company Number: JP-PFIZER INC-2020507258

PATIENT

DRUGS (3)
  1. CORTRIL [Suspect]
     Active Substance: HYDROCORTISONE
     Dosage: UNK
  2. DEPAKENE [VALPROATE SODIUM] [Suspect]
     Active Substance: VALPROATE SODIUM
     Dosage: UNK
  3. THYRADIN [Suspect]
     Active Substance: LEVOTHYROXINE
     Dosage: UNK

REACTIONS (1)
  - Gastric fistula [Unknown]
